FAERS Safety Report 8443788-5 (Version None)
Quarter: 2012Q2

REPORT INFORMATION
  Report Type: 
  Country: None (occurrence: None)
  Receive Date: 20120618
  Receipt Date: 20120611
  Transmission Date: 20120825
  Serious: Yes (Other)
  Sender: FDA-Public Use
  Company Number: PL-US-EMD SERONO, INC.-7139354

PATIENT
  Age: 29 Year
  Sex: Female

DRUGS (6)
  1. FENOTEROL [Concomitant]
     Indication: CERVIX DISORDER
     Route: 048
  2. CLOMIPHENE CITRATE [Suspect]
     Indication: OVULATION INDUCTION
  3. CLOMIPHENE CITRATE [Suspect]
  4. CELESTAN [Concomitant]
     Indication: CERVIX DISORDER
     Dosage: 2X12 MG
  5. CELESTAN [Concomitant]
     Indication: UTERINE CONTRACTIONS ABNORMAL
  6. FENOTEROL [Concomitant]
     Indication: UTERINE CONTRACTIONS ABNORMAL
     Route: 042

REACTIONS (3)
  - MULTIPLE PREGNANCY [None]
  - PREMATURE DELIVERY [None]
  - OVARIAN HYPERSTIMULATION SYNDROME [None]
